FAERS Safety Report 9331840 (Version 3)
Quarter: 2015Q1

REPORT INFORMATION
  Report Type: Report from Study
  Country: US (occurrence: US)
  Receive Date: 20130605
  Receipt Date: 20150120
  Transmission Date: 20150721
  Serious: No
  Sender: FDA-Public Use
  Company Number: US-ALEXION-A201301184

PATIENT

DRUGS (1)
  1. SOLIRIS [Suspect]
     Active Substance: ECULIZUMAB
     Indication: PAROXYSMAL NOCTURNAL HAEMOGLOBINURIA
     Dosage: UNK
     Route: 042

REACTIONS (8)
  - Treatment noncompliance [Unknown]
  - Malaise [Unknown]
  - Blood urine present [Not Recovered/Not Resolved]
  - Flank pain [Unknown]
  - Haematuria [Unknown]
  - Abdominal pain [Not Recovered/Not Resolved]
  - Muscle strain [Unknown]
  - Chromaturia [Unknown]

NARRATIVE: CASE EVENT DATE: 20141217
